FAERS Safety Report 7256541 (Version 4)
Quarter: 2012Q4

REPORT INFORMATION
  Report Type: 
  Country: US (occurrence: US)
  Receive Date: 20100126
  Receipt Date: 20120918
  Transmission Date: 20130627
  Serious: Yes (Hospitalization, Other)
  Sender: FDA-Public Use
  Company Number: US-BAYER-201011624NA

PATIENT
  Age: 40 Year
  Sex: Female
  Weight: 73.47 kg

DRUGS (15)
  1. YASMIN [Suspect]
     Indication: ENDOMETRIOSIS
     Dosage: 1 DF (Daily Dose), QD, oral
     Route: 048
  2. YASMIN [Suspect]
     Indication: PREMENSTRUAL SYNDROME
  3. Z-MAX [Concomitant]
  4. MEDROL [METHYLPREDNISOLONE] [Concomitant]
     Dosage: UNK
     Dates: start: 20060116
  5. COMBIVENT [IPRATROPIUM BROMIDE,SALBUTAMOL] [Concomitant]
     Indication: SEASONAL ALLERGY
     Dosage: UNK UNK, PRN
     Dates: start: 20060116
  6. ZYRTEC [Concomitant]
     Dosage: UNK
     Dates: start: 20060116
  7. SINGULAIR [Concomitant]
  8. MOBIC [Concomitant]
  9. TORADOL [Concomitant]
  10. TOPAMAX [Concomitant]
     Indication: MIGRAINE PROPHYLAXIS
     Dosage: UNK UNK, CONT
     Dates: start: 2006
  11. COUMADIN [Concomitant]
     Indication: DEEP VEIN THROMBOSIS
  12. PRILOSEC [Concomitant]
  13. METHYLPREDNISOLONE [METHYLPREDNISOLONE] [Concomitant]
     Indication: BRONCHITIS
     Dosage: UNK
     Dates: start: 2006
  14. METHYLPREDNISOLONE [METHYLPREDNISOLONE] [Concomitant]
     Indication: COUGH
  15. ZYRTEC-D [Concomitant]
     Indication: SEASONAL ALLERGY
     Dosage: UNK UNK, CONT

REACTIONS (8)
  - Deep vein thrombosis [None]
  - Pulmonary embolism [Unknown]
  - Thrombophlebitis [None]
  - Post thrombotic syndrome [None]
  - Vein disorder [Unknown]
  - Venous insufficiency [None]
  - Oedema peripheral [None]
  - Pain in extremity [None]
